FAERS Safety Report 9611783 (Version 3)
Quarter: 2013Q4

REPORT INFORMATION
  Report Type: Spontaneous
  Country: FR (occurrence: FR)
  Receive Date: 20131010
  Receipt Date: 20131017
  Transmission Date: 20140711
  Serious: Yes (Hospitalization)
  Sender: FDA-Public Use
  Company Number: FR-JNJFOC-EMADSS2002000330

PATIENT
  Age: 75 Year
  Sex: Male

DRUGS (4)
  1. PEVARYL [Suspect]
     Indication: FUNGAL INFECTION
     Route: 003
     Dates: start: 19950414, end: 19950429
  2. SINTROM [Interacting]
     Indication: THROMBOSIS PROPHYLAXIS
     Route: 048
     Dates: start: 1990
  3. PIPEMIDIC ACID [Interacting]
     Indication: URINARY TRACT INFECTION
     Route: 048
     Dates: start: 19950428, end: 19950429
  4. AUGMENTIN [Interacting]
     Indication: PNEUMONIA BACTERIAL
     Route: 048
     Dates: start: 19950424, end: 19950429

REACTIONS (3)
  - Prothrombin level decreased [Recovered/Resolved]
  - Gastrointestinal haemorrhage [Recovered/Resolved]
  - Drug interaction [Recovered/Resolved]
